FAERS Safety Report 18263169 (Version 1)
Quarter: 2020Q3

REPORT INFORMATION
  Report Type: Spontaneous
  Country: NL (occurrence: FR)
  Receive Date: 20200914
  Receipt Date: 20200914
  Transmission Date: 20201103
  Serious: Yes (Other)
  Sender: FDA-Public Use
  Company Number: FR-FRESENIUS KABI-FK202009245

PATIENT
  Age: 76 Year
  Sex: Female
  Weight: 85.3 kg

DRUGS (4)
  1. NEFOPAM HYDROCHLORIDE [Interacting]
     Active Substance: NEFOPAM HYDROCHLORIDE
     Indication: PAIN
     Route: 041
     Dates: start: 20200808, end: 20200811
  2. TRAMADOL HYDROCHLORIDE. [Interacting]
     Active Substance: TRAMADOL HYDROCHLORIDE
     Indication: PAIN
     Route: 041
     Dates: start: 20200808, end: 20200811
  3. LINEZOLID KABI [Suspect]
     Active Substance: LINEZOLID
     Indication: SEPTIC SHOCK
     Dosage: NO COMMENTS
     Route: 041
     Dates: start: 20200809, end: 20200812
  4. CEFEPIME HYDROCHLORIDE. [Interacting]
     Active Substance: CEFEPIME HYDROCHLORIDE
     Indication: SEPTIC SHOCK
     Route: 041
     Dates: start: 20200809, end: 20200812

REACTIONS (3)
  - Hallucination [Recovered/Resolved]
  - Agitation [Recovered/Resolved]
  - Confusional state [Recovered/Resolved]

NARRATIVE: CASE EVENT DATE: 20200810
